FAERS Safety Report 6023302-4 (Version None)
Quarter: 2008Q4

REPORT INFORMATION
  Report Type: 
  Country: None (occurrence: None)
  Receive Date: 20081222
  Receipt Date: 20081114
  Transmission Date: 20090506
  Serious: No
  Sender: FDA-Public Use
  Company Number: ALL1-2008-03334

PATIENT
  Age: 6 Year
  Sex: Male
  Weight: 22.7 kg

DRUGS (3)
  1. VYVANSE [Suspect]
     Indication: ATTENTION DEFICIT/HYPERACTIVITY DISORDER
     Dosage: SEE IMAGE
     Route: 048
     Dates: start: 20081001, end: 20081001
  2. VYVANSE [Suspect]
     Indication: ATTENTION DEFICIT/HYPERACTIVITY DISORDER
     Dosage: SEE IMAGE
     Route: 048
     Dates: start: 20081001, end: 20081101
  3. VYVANSE [Suspect]
     Indication: ATTENTION DEFICIT/HYPERACTIVITY DISORDER
     Dosage: SEE IMAGE
     Route: 048
     Dates: start: 20081101

REACTIONS (6)
  - ABDOMINAL PAIN UPPER [None]
  - CRYING [None]
  - DEPRESSED MOOD [None]
  - DRUG INEFFECTIVE [None]
  - SOCIAL AVOIDANT BEHAVIOUR [None]
  - TIC [None]
